FAERS Safety Report 10184374 (Version 1)
Quarter: 2014Q2

REPORT INFORMATION
  Report Type: Spontaneous
  Country: US (occurrence: US)
  Receive Date: 20140521
  Receipt Date: 20140521
  Transmission Date: 20141212
  Serious: Yes (Other)
  Sender: FDA-Public Use
  Company Number: US-ROCHE-1404232

PATIENT
  Age: 62 Year
  Sex: Female

DRUGS (2)
  1. RITUXIMAB [Suspect]
     Indication: B-CELL LYMPHOMA
     Route: 065
     Dates: start: 2002, end: 2005
  2. RITUXIMAB [Suspect]
     Route: 065
     Dates: start: 201009

REACTIONS (1)
  - Colitis [Unknown]
